FAERS Safety Report 4340267-1 (Version None)
Quarter: 2004Q2

REPORT INFORMATION
  Report Type: 
  Country: None (occurrence: None)
  Receive Date: 20040412
  Receipt Date: 20040402
  Transmission Date: 20050107
  Serious: Yes (Hospitalization)
  Sender: FDA-Public Use
  Company Number: HQ2665510JUN2002

PATIENT
  Age: 46 Year
  Sex: Female
  Weight: 71 kg

DRUGS (4)
  1. ENBREL [Suspect]
     Indication: RHEUMATOID ARTHRITIS
     Dosage: 25 MG 2X PER 1 WK, SUBCUTANEOUS
     Route: 058
     Dates: start: 20010625, end: 20020611
  2. SULFASALAZINE [Suspect]
     Indication: RHEUMATOID ARTHRITIS
     Dosage: 2 - 3 GRAMS AS PER PROTOCOL ADMINISTERED TWICE DAILY, ORAL
     Route: 048
     Dates: start: 20010625, end: 20020611
  3. DICARBOCALM (CALCIUM CARBONATE/MAGNESIUM CARBONATE/MAGNESIUM TRISILICA [Concomitant]
  4. DICLOFENAC SODIUM [Concomitant]

REACTIONS (1)
  - LYMPH NODE TUBERCULOSIS [None]
